FAERS Safety Report 6526099-4 (Version None)
Quarter: 2010Q1

REPORT INFORMATION
  Report Type: 
  Country: None (occurrence: None)
  Receive Date: 20100104
  Receipt Date: 20091228
  Transmission Date: 20100710
  Serious: Yes (Life-Threatening)
  Sender: FDA-Public Use
  Company Number: NL-SANOFI-AVENTIS-2009SA011378

PATIENT
  Age: 40 Year
  Sex: Female

DRUGS (10)
  1. ELOXATIN [Suspect]
     Route: 041
  2. ELOXATIN [Suspect]
     Route: 041
  3. ELOXATIN [Suspect]
     Route: 041
  4. CAPECITABINE [Suspect]
     Route: 048
  5. CAPECITABINE [Suspect]
     Route: 048
  6. CAPECITABINE [Suspect]
     Route: 048
  7. AVASTIN [Suspect]
     Route: 042
  8. AVASTIN [Suspect]
     Route: 042
  9. AVASTIN [Suspect]
     Route: 042
  10. METOCLOPRAMIDE [Concomitant]

REACTIONS (2)
  - ELECTROCARDIOGRAM QT PROLONGED [None]
  - VENTRICULAR FIBRILLATION [None]
